FAERS Safety Report 6825983-1 (Version None)
Quarter: 2010Q3

REPORT INFORMATION
  Report Type: 
  Country: None (occurrence: None)
  Receive Date: 20100709
  Receipt Date: 20100701
  Transmission Date: 20110219
  Serious: Yes (Hospitalization)
  Sender: FDA-Public Use
  Company Number: IT-JNJFOC-20100602729

PATIENT
  Sex: Female

DRUGS (4)
  1. HALDOL [Suspect]
     Indication: SUICIDE ATTEMPT
     Route: 048
  2. AKINETON [Suspect]
     Indication: SUICIDE ATTEMPT
     Route: 048
  3. PAROXETINE HCL [Suspect]
     Indication: SUICIDE ATTEMPT
     Route: 048
  4. SAMYR [Suspect]
     Indication: SUICIDE ATTEMPT
     Route: 048

REACTIONS (6)
  - MULTIPLE DRUG OVERDOSE INTENTIONAL [None]
  - MYDRIASIS [None]
  - SELF INJURIOUS BEHAVIOUR [None]
  - SLUGGISHNESS [None]
  - SOPOR [None]
  - TACHYCARDIA [None]
